FAERS Safety Report 19061630 (Version 1)
Quarter: 2021Q1

REPORT INFORMATION
  Report Type: Spontaneous
  Country: DE (occurrence: DE)
  Receive Date: 20210326
  Receipt Date: 20210326
  Transmission Date: 20210420
  Serious: Yes (Other)
  Sender: FDA-Public Use
  Company Number: DE-ESPERIONTHERAPEUTICS-2021DEU00581

PATIENT
  Sex: Male

DRUGS (1)
  1. NUSTENDI [Suspect]
     Active Substance: BEMPEDOIC ACID\EZETIMIBE
     Indication: HYPERLIPIDAEMIA
     Dosage: 180/10 MG ONCE DAILY
     Route: 048

REACTIONS (1)
  - Dermatitis allergic [Unknown]
